FAERS Safety Report 25379156 (Version 1)
Quarter: 2025Q2

REPORT INFORMATION
  Report Type: Spontaneous
  Country: BE (occurrence: BE)
  Receive Date: 20250530
  Receipt Date: 20250530
  Transmission Date: 20250717
  Serious: Yes (Other)
  Sender: MYLAN
  Company Number: BE-MYLANLABS-2025M1045103

PATIENT
  Age: 4 Decade
  Sex: Male

DRUGS (3)
  1. MOXIFLOXACIN [Suspect]
     Active Substance: MOXIFLOXACIN
     Indication: Mycoplasma genitalium infection
     Dosage: 400 MILLIGRAM, QD
  2. AZITHROMYCIN [Suspect]
     Active Substance: AZITHROMYCIN
     Indication: Mycoplasma genitalium infection
  3. DOXYCYCLINE [Suspect]
     Active Substance: DOXYCYCLINE
     Indication: Mycoplasma genitalium infection

REACTIONS (1)
  - Drug ineffective [Unknown]
